FAERS Safety Report 6528631-3 (Version None)
Quarter: 2010Q1

REPORT INFORMATION
  Report Type: 
  Country: None (occurrence: None)
  Receive Date: 20100106
  Receipt Date: 20091222
  Transmission Date: 20100710
  Serious: Yes (Hospitalization)
  Sender: FDA-Public Use
  Company Number: FR-GENENTECH-290164

PATIENT
  Sex: Male
  Weight: 60 kg

DRUGS (10)
  1. LUCENTIS [Suspect]
     Indication: MACULAR DEGENERATION
     Dosage: UNK
     Route: 031
     Dates: start: 20081121
  2. LUCENTIS [Suspect]
     Dosage: UNK
     Route: 031
     Dates: start: 20090109
  3. DIAMICRON [Concomitant]
     Indication: DRUG USE FOR UNKNOWN INDICATION
  4. LASILIX [Concomitant]
     Indication: DRUG USE FOR UNKNOWN INDICATION
  5. TRIATEC [Concomitant]
     Indication: DRUG USE FOR UNKNOWN INDICATION
  6. CORTANCYL [Concomitant]
     Indication: DRUG USE FOR UNKNOWN INDICATION
  7. ESOMEPRAZOLE SODIUM (NEXIUM) [Concomitant]
     Indication: DRUG USE FOR UNKNOWN INDICATION
  8. DUPHALAC [Concomitant]
     Indication: DRUG USE FOR UNKNOWN INDICATION
  9. VITAMIN K TAB [Concomitant]
     Indication: DRUG USE FOR UNKNOWN INDICATION
  10. FOLIC ACID [Concomitant]
     Indication: DRUG USE FOR UNKNOWN INDICATION

REACTIONS (1)
  - LUNG DISORDER [None]
